FAERS Safety Report 22290336 (Version 1)
Quarter: 2023Q2

REPORT INFORMATION
  Report Type: Spontaneous
  Country: US (occurrence: US)
  Receive Date: 20230505
  Receipt Date: 20230505
  Transmission Date: 20230722
  Serious: No
  Sender: FDA-Public Use
  Company Number: US-PFIZER INC-PV202300080681

PATIENT
  Age: 55 Year
  Sex: Male
  Weight: 107.3 kg

DRUGS (1)
  1. AZITHROMYCIN [Suspect]
     Active Substance: AZITHROMYCIN
     Dosage: UNK

REACTIONS (3)
  - Abdominal discomfort [Unknown]
  - Urticaria [Unknown]
  - Drug hypersensitivity [Unknown]
